FAERS Safety Report 12089069 (Version 1)
Quarter: 2016Q1

REPORT INFORMATION
  Report Type: Spontaneous
  Country: GB (occurrence: GB)
  Receive Date: 20160218
  Receipt Date: 20160218
  Transmission Date: 20160526
  Serious: Yes (Other)
  Sender: FDA-Public Use
  Company Number: GB-JNJFOC-20160214380

PATIENT
  Age: 94 Year
  Sex: Female

DRUGS (2)
  1. GALANTAMINE HBR [Suspect]
     Active Substance: GALANTAMINE HYDROBROMIDE
     Indication: PRODUCT USED FOR UNKNOWN INDICATION
     Route: 048
     Dates: start: 20150811
  2. MELATONIN [Interacting]
     Active Substance: MELATONIN
     Indication: PRODUCT USED FOR UNKNOWN INDICATION
     Dosage: AT NIGHT
     Route: 048
     Dates: start: 20160127, end: 20160203

REACTIONS (2)
  - Drug interaction [Unknown]
  - Vasculitic rash [Not Recovered/Not Resolved]

NARRATIVE: CASE EVENT DATE: 20160201
